FAERS Safety Report 9308892 (Version 1)
Quarter: 2013Q2

REPORT INFORMATION
  Report Type: Spontaneous
  Country: BR (occurrence: BR)
  Receive Date: 20130524
  Receipt Date: 20130524
  Transmission Date: 20140414
  Serious: Yes (Hospitalization)
  Sender: FDA-Public Use
  Company Number: BR-ASTRAZENECA-2013SE35107

PATIENT
  Age: 51 Year
  Sex: Male
  Weight: 90 kg

DRUGS (6)
  1. ATACAND [Suspect]
     Indication: BLOOD PRESSURE ABNORMAL
     Route: 048
     Dates: start: 2007
  2. CRESTOR [Suspect]
     Indication: MYOCARDIAL INFARCTION
     Route: 048
     Dates: start: 2010, end: 201301
  3. CRESTOR [Suspect]
     Indication: MYOCARDIAL INFARCTION
     Route: 048
  4. BRILINTA [Suspect]
     Indication: MYOCARDIAL INFARCTION
     Route: 048
     Dates: start: 2010
  5. CONCOR [Concomitant]
     Indication: MYOCARDIAL INFARCTION
     Dates: start: 2010
  6. ASPIRIN PREVENT [Concomitant]
     Indication: MYOCARDIAL INFARCTION
     Dates: start: 2010

REACTIONS (3)
  - Myocardial infarction [Recovered/Resolved]
  - Blood testosterone decreased [Recovered/Resolved]
  - Off label use [Not Recovered/Not Resolved]
